FAERS Safety Report 19169923 (Version 2)
Quarter: 2021Q2

REPORT INFORMATION
  Report Type: Spontaneous
  Country: US (occurrence: US)
  Receive Date: 20210422
  Receipt Date: 20210622
  Transmission Date: 20210717
  Serious: Yes (Other)
  Sender: FDA-Public Use
  Company Number: US-TEVA-2021-US-1902756

PATIENT
  Age: 46 Year
  Sex: Female

DRUGS (8)
  1. TEPROTUMUMAB. [Suspect]
     Active Substance: TEPROTUMUMAB
     Indication: EXOPHTHALMOS
     Dosage: INITIAL DOSE
     Route: 050
  2. TEPROTUMUMAB. [Suspect]
     Active Substance: TEPROTUMUMAB
     Indication: ENDOCRINE OPHTHALMOPATHY
     Dosage: FOR THE REMAINING DOSES
     Route: 050
  3. PREDNISONE. [Suspect]
     Active Substance: PREDNISONE
     Indication: EXOPHTHALMOS
     Route: 048
  4. SELENIUM [Concomitant]
     Active Substance: SELENIUM
     Indication: EXOPHTHALMOS
     Route: 065
  5. PREDNISONE. [Suspect]
     Active Substance: PREDNISONE
     Indication: ENDOCRINE OPHTHALMOPATHY
  6. METHIMAZOLE. [Concomitant]
     Active Substance: METHIMAZOLE
     Indication: HYPERTHYROIDISM
     Dosage: 5 MILLIGRAM DAILY;
     Route: 048
  7. METHIMAZOLE. [Concomitant]
     Active Substance: METHIMAZOLE
     Indication: BASEDOW^S DISEASE
  8. SELENIUM [Concomitant]
     Active Substance: SELENIUM
     Indication: ENDOCRINE OPHTHALMOPATHY

REACTIONS (5)
  - Treatment failure [Unknown]
  - Deafness [Recovered/Resolved]
  - Colitis ulcerative [Unknown]
  - Haematochezia [Unknown]
  - Muscle spasms [Unknown]
